FAERS Safety Report 11022138 (Version 11)
Quarter: 2018Q2

REPORT INFORMATION
  Report Type: Report from Study
  Country: BR (occurrence: BR)
  Receive Date: 20150413
  Receipt Date: 20180510
  Transmission Date: 20180711
  Serious: Yes (Hospitalization, Other)
  Sender: FDA-Public Use
  Company Number: BR-GLAXOSMITHKLINE-BR2015047857

PATIENT
  Age: 21 Year
  Sex: Female
  Weight: 85 kg

DRUGS (14)
  1. AMPICILLIN [Concomitant]
     Active Substance: AMPICILLIN
     Indication: SEPSIS
     Dosage: 2000 MG, QID
     Route: 042
     Dates: start: 20150426, end: 20150427
  2. AMPHOTERICIN [Concomitant]
     Active Substance: AMPHOTERICIN B
     Indication: SEPSIS
     Dosage: 80 MG, QD
     Route: 042
     Dates: start: 20150427, end: 20150427
  3. AMOXICILLIN AND CLAVULANIC ACID [Concomitant]
     Active Substance: AMOXICILLIN\CLAVULANIC ACID
     Indication: SEPSIS
     Dosage: 1 G, TID
     Route: 042
     Dates: start: 20150408, end: 20150411
  4. POLYMYXIN B. [Concomitant]
     Active Substance: POLYMYXIN B
     Indication: SEPSIS
     Dosage: 1000000 UNIT, BID
     Route: 042
     Dates: start: 20150504, end: 20150510
  5. FLUCONAZOLE. [Concomitant]
     Active Substance: FLUCONAZOLE
     Indication: MOUTH ULCERATION
     Dosage: 200 MG, QD
     Route: 042
     Dates: start: 20150408, end: 20150414
  6. AMPICILLIN AND SULBACTAM [Concomitant]
     Active Substance: AMPICILLIN SODIUM\SULBACTAM SODIUM
     Indication: SEPSIS
     Dosage: 3000 MG, TID
     Route: 042
     Dates: start: 20150427, end: 20150429
  7. ALBENDAZOLE [Concomitant]
     Active Substance: ALBENDAZOLE
     Indication: ANTIFUNGAL TREATMENT
     Dosage: 400 MG, QD
     Route: 042
     Dates: start: 20150427, end: 20150428
  8. VANCOMYCIN [Concomitant]
     Active Substance: VANCOMYCIN
     Dosage: 1250 MG, TID
     Route: 042
     Dates: start: 20150502, end: 20150503
  9. BELIMUMAB [Suspect]
     Active Substance: BELIMUMAB
     Indication: SYSTEMIC LUPUS ERYTHEMATOSUS
     Dosage: 10 MG/KG, CYC
     Route: 042
     Dates: start: 20150319, end: 20150330
  10. MEROPENEM. [Concomitant]
     Active Substance: MEROPENEM
     Indication: SEPSIS
     Dosage: 2000 MG, TID
     Route: 042
     Dates: start: 20150427, end: 20150513
  11. VANCOMYCIN [Concomitant]
     Active Substance: VANCOMYCIN
     Indication: SEPSIS
     Dosage: 1500 MG, BID
     Route: 042
     Dates: start: 20150427, end: 20150427
  12. SULFAMETHOXAZOL + TRIMETHOPRIM [Concomitant]
     Active Substance: SULFAMETHOXAZOLE\TRIMETHOPRIM
     Indication: PNEUMOCYSTIS JIROVECII PNEUMONIA
     Dosage: 4 UNK, QID
     Route: 042
     Dates: start: 20150507, end: 20150512
  13. CEFEPIME [Concomitant]
     Active Substance: CEFEPIME HYDROCHLORIDE
     Indication: SEPSIS
     Dosage: 2000 MG, TID
     Route: 042
     Dates: start: 20150426, end: 20150427
  14. FLUCONAZOLE. [Concomitant]
     Active Substance: FLUCONAZOLE
     Indication: SEPSIS
     Dosage: 100 MG, QD
     Route: 048
     Dates: start: 20150609, end: 20150611

REACTIONS (1)
  - Cytomegalovirus mucocutaneous ulcer [Recovered/Resolved]

NARRATIVE: CASE EVENT DATE: 20150408
